FAERS Safety Report 6732961-X (Version None)
Quarter: 2010Q2

REPORT INFORMATION
  Report Type: 
  Country: None (occurrence: None)
  Receive Date: 20100519
  Receipt Date: 20100511
  Transmission Date: 20101027
  Serious: Yes (Hospitalization)
  Sender: FDA-Public Use
  Company Number: US-AMGEN-QUU411900

PATIENT
  Sex: Female

DRUGS (3)
  1. ENBREL [Suspect]
     Indication: RHEUMATOID ARTHRITIS
     Route: 058
     Dates: start: 20000101
  2. COUMADIN [Concomitant]
  3. OXYGEN [Concomitant]

REACTIONS (4)
  - ANTICOAGULANT THERAPY [None]
  - HAEMATOMA [None]
  - OXYGEN SUPPLEMENTATION [None]
  - RHEUMATOID ARTHRITIS [None]
